FAERS Safety Report 5322493-8 (Version None)
Quarter: 2007Q2

REPORT INFORMATION
  Report Type: 
  Country: None (occurrence: None)
  Receive Date: 20070511
  Receipt Date: 20070508
  Transmission Date: 20071010
  Serious: Yes (Disabling)
  Sender: FDA-Public Use
  Company Number: US-MERCK-0705USA01747

PATIENT
  Sex: Male

DRUGS (1)
  1. JANUVIA [Suspect]
     Route: 048
     Dates: start: 20070101, end: 20070401

REACTIONS (3)
  - CARPAL TUNNEL SYNDROME [None]
  - DIZZINESS [None]
  - NEUROPATHY [None]
